FAERS Safety Report 9837739 (Version 4)
Quarter: 2014Q4

REPORT INFORMATION
  Report Type: Spontaneous
  Country: PR (occurrence: PR)
  Receive Date: 20140123
  Receipt Date: 20141030
  Transmission Date: 20150529
  Serious: Yes (Other)
  Sender: FDA-Public Use
  Company Number: PR-BAYER-2012-105622

PATIENT
  Age: 66 Year
  Sex: Male
  Weight: 95.24 kg

DRUGS (4)
  1. NEXAVAR [Suspect]
     Active Substance: SORAFENIB
     Indication: THYROID CANCER
     Dosage: 400 MG, BID
     Route: 048
     Dates: start: 20120913
  2. COMPAZINE [Concomitant]
     Active Substance: PROCHLORPERAZINE MALEATE
  3. NEXAVAR [Suspect]
     Active Substance: SORAFENIB
     Indication: THYROID CANCER
     Dosage: DAILY DOSE 800 MG
     Route: 048
     Dates: start: 20120305, end: 2012
  4. NEXAVAR [Suspect]
     Active Substance: SORAFENIB
     Indication: THYROID CANCER
     Dosage: DAILY DOSE 400 MG
     Route: 048

REACTIONS (6)
  - Tooth loss [None]
  - Thyroid cancer [None]
  - Dizziness [None]
  - Weight increased [None]
  - Abdominal pain upper [None]
  - Decreased appetite [None]
